FAERS Safety Report 4649445-5 (Version None)
Quarter: 2005Q2

REPORT INFORMATION
  Report Type: 
  Country: None (occurrence: None)
  Receive Date: 20050427
  Receipt Date: 20050414
  Transmission Date: 20051028
  Serious: Yes (Hospitalization, Other)
  Sender: FDA-Public Use
  Company Number: 2005059827

PATIENT
  Age: 67 Year
  Sex: Female
  Weight: 106.5953 kg

DRUGS (4)
  1. CELEBREX [Suspect]
     Indication: JOINT SPRAIN
     Dosage: ORAL
     Route: 048
     Dates: start: 19960101, end: 20010101
  2. CELEBREX [Suspect]
     Indication: MONARTHRITIS
     Dosage: ORAL
     Route: 048
     Dates: start: 19960101, end: 20010101
  3. BEXTRA [Suspect]
     Indication: ARTHRITIS
     Dosage: 10 MG (10 MG, 1 IN 1 D)
  4. STEROID ANTIBACTERIALS (STEROID ANTIBACTERIALS) [Suspect]
     Indication: INFECTION
     Dosage: ORAL
     Route: 048
     Dates: start: 20030101

REACTIONS (10)
  - BACK PAIN [None]
  - BODY HEIGHT DECREASED [None]
  - DIABETES MELLITUS NON-INSULIN-DEPENDENT [None]
  - FAILURE OF IMPLANT [None]
  - FALL [None]
  - GASTRIC HAEMORRHAGE [None]
  - HAEMORRHAGE [None]
  - IMPLANT SITE EFFUSION [None]
  - RENAL CELL CARCINOMA STAGE UNSPECIFIED [None]
  - THYROIDITIS [None]
